FAERS Safety Report 5044198-3 (Version None)
Quarter: 2006Q3

REPORT INFORMATION
  Report Type: 
  Country: None (occurrence: None)
  Receive Date: 20060706
  Receipt Date: 20060504
  Transmission Date: 20061208
  Serious: Yes (Other)
  Sender: FDA-Public Use
  Company Number: BR-ROCHE-447080

PATIENT
  Age: 19 Year
  Sex: Female
  Weight: 67 kg

DRUGS (2)
  1. ROACUTAN [Suspect]
     Indication: ACNE
     Route: 048
     Dates: start: 20050815, end: 20050915
  2. CONTRACEPTIVE NOS [Concomitant]
     Route: 048
     Dates: start: 20060223, end: 20060223

REACTIONS (3)
  - ABORTION SPONTANEOUS [None]
  - DRUG EXPOSURE BEFORE PREGNANCY [None]
  - UNWANTED PREGNANCY [None]
